FAERS Safety Report 15537399 (Version 1)
Quarter: 2018Q4

REPORT INFORMATION
  Report Type: Spontaneous
  Country: US (occurrence: US)
  Receive Date: 20181022
  Receipt Date: 20181022
  Transmission Date: 20190205
  Serious: No
  Sender: FDA-Public Use
  Company Number: US-TEVA-2018-US-964541

PATIENT
  Sex: Female

DRUGS (2)
  1. VENLAFAXINE HYDROCHLORIDE EXTENDED-RELEASE [Suspect]
     Active Substance: VENLAFAXINE HYDROCHLORIDE
     Route: 065
     Dates: start: 201804
  2. LAMOTRIGINE. [Suspect]
     Active Substance: LAMOTRIGINE
     Route: 045

REACTIONS (7)
  - Night sweats [Unknown]
  - Lip swelling [Unknown]
  - Crying [Unknown]
  - Peripheral swelling [Unknown]
  - Urticaria [Unknown]
  - Pain in extremity [Unknown]
  - Lip pain [Unknown]

NARRATIVE: CASE EVENT DATE: 2018
